FAERS Safety Report 20613271 (Version 1)
Quarter: 2022Q1

REPORT INFORMATION
  Report Type: Spontaneous
  Country: US (occurrence: US)
  Receive Date: 20220318
  Receipt Date: 20220318
  Transmission Date: 20220423
  Serious: No
  Sender: FDA-Public Use
  Company Number: US-SEPTODONT-2021006514

PATIENT

DRUGS (1)
  1. LIDOCAINE [Suspect]
     Active Substance: LIDOCAINE
     Dosage: DENTAL NEEDLE: 27 GAUGE
     Route: 004

REACTIONS (2)
  - Haemorrhage [Recovered/Resolved]
  - Coagulopathy [Recovered/Resolved]
